FAERS Safety Report 14183177 (Version 1)
Quarter: 2017Q4

REPORT INFORMATION
  Report Type: Spontaneous
  Country: US (occurrence: US)
  Receive Date: 20171113
  Receipt Date: 20171113
  Transmission Date: 20180321
  Serious: No
  Sender: FDA-Public Use
  Company Number: US-PFIZER INC-2017481897

PATIENT
  Sex: Female

DRUGS (3)
  1. LYRICA [Suspect]
     Active Substance: PREGABALIN
     Indication: INSOMNIA
  2. LYRICA [Suspect]
     Active Substance: PREGABALIN
     Indication: NEURALGIA
     Dosage: TAKING TWO 75 MG CAPSULES AT NIGHT
     Dates: start: 20171104
  3. LYRICA [Suspect]
     Active Substance: PREGABALIN
     Indication: NECK PAIN
     Dosage: TAKING TWO 50 MG CAPSULES AT NIGHT
     Route: 048
     Dates: start: 201709

REACTIONS (2)
  - Drug effect incomplete [Unknown]
  - Fatigue [Unknown]
